FAERS Safety Report 13944918 (Version 1)
Quarter: 2017Q3

REPORT INFORMATION
  Report Type: Report from Study
  Country: None (occurrence: US)
  Receive Date: 20170907
  Receipt Date: 20170907
  Transmission Date: 20171128
  Serious: Yes (Other)
  Sender: FDA-Public Use
  Company Number: US-ABBVIE-17K-163-2089128-00

PATIENT
  Age: 65 Year
  Sex: Male
  Weight: 93.52 kg

DRUGS (11)
  1. PLAQUENIL [Concomitant]
     Active Substance: HYDROXYCHLOROQUINE SULFATE
     Indication: RHEUMATOID ARTHRITIS
  2. JUNEVIA [Concomitant]
     Indication: DIABETES MELLITUS
  3. ALGIN [Concomitant]
     Indication: IRRITABLE BOWEL SYNDROME
  4. LORATADINE. [Concomitant]
     Active Substance: LORATADINE
     Indication: SEASONAL ALLERGY
  5. ASPIRIN. [Concomitant]
     Active Substance: ASPIRIN
     Indication: BLOOD CHOLESTEROL INCREASED
  6. CELECOXIB. [Concomitant]
     Active Substance: CELECOXIB
     Indication: RHEUMATOID ARTHRITIS
  7. HUMIRA [Suspect]
     Active Substance: ADALIMUMAB
     Indication: RHEUMATOID ARTHRITIS
     Route: 058
     Dates: start: 2010, end: 20170118
  8. HCTZLOSARTAN HCTZ [Concomitant]
     Indication: HYPERTENSION
  9. HUMIRA [Suspect]
     Active Substance: ADALIMUMAB
     Route: 058
     Dates: start: 20170829
  10. ALLOPURINOL. [Concomitant]
     Active Substance: ALLOPURINOL
     Indication: GOUT
  11. VITAMIN D [Concomitant]
     Active Substance: CHOLECALCIFEROL
     Indication: PRODUCT USED FOR UNKNOWN INDICATION

REACTIONS (22)
  - Postoperative wound complication [Recovered/Resolved]
  - Wound complication [Recovered/Resolved]
  - Wound complication [Recovered/Resolved]
  - Postoperative wound infection [Recovered/Resolved]
  - Laceration [Recovered/Resolved]
  - Pseudomonas infection [Recovered/Resolved]
  - Post procedural discharge [Recovered/Resolved]
  - Escherichia infection [Recovered/Resolved]
  - Beta haemolytic streptococcal infection [Recovered/Resolved]
  - Impaired healing [Recovered/Resolved]
  - Cellulitis [Recovered/Resolved]
  - Tooth fracture [Recovered/Resolved]
  - Tendon disorder [Not Recovered/Not Resolved]
  - C-reactive protein increased [Recovered/Resolved]
  - Neutrophil count increased [Recovered/Resolved]
  - Scar [Not Recovered/Not Resolved]
  - Injury [Unknown]
  - Bursitis [Recovered/Resolved]
  - Wound complication [Recovered/Resolved]
  - Fall [Recovered/Resolved]
  - Impaired healing [Recovered/Resolved]
  - Limb injury [Not Recovered/Not Resolved]

NARRATIVE: CASE EVENT DATE: 201612
